FAERS Safety Report 5939194-5 (Version None)
Quarter: 2008Q4

REPORT INFORMATION
  Report Type: 
  Country: None (occurrence: None)
  Receive Date: 20081103
  Receipt Date: 20081023
  Transmission Date: 20090506
  Serious: Yes (Hospitalization)
  Sender: FDA-Public Use
  Company Number: JP-WYE-H06599808

PATIENT
  Sex: Male

DRUGS (1)
  1. ANCARON [Suspect]
     Dosage: NOT PROVIDED
     Route: 048

REACTIONS (1)
  - CONVULSION [None]
